FAERS Safety Report 7804231-X (Version None)
Quarter: 2011Q4

REPORT INFORMATION
  Report Type: 
  Country: None (occurrence: None)
  Receive Date: 20111010
  Receipt Date: 20110919
  Transmission Date: 20120403
  Serious: Yes (Hospitalization, Other)
  Sender: FDA-Public Use
  Company Number: US-ELI_LILLY_AND_COMPANY-US201009007902

PATIENT
  Sex: Female
  Weight: 56.689 kg

DRUGS (2)
  1. FORTEO [Suspect]
     Indication: OSTEOPOROSIS
     Dosage: 20 UG, DAILY (1/D)
     Route: 058
     Dates: start: 20100101
  2. FORTEO [Suspect]
     Dosage: 20 UG, QD
     Route: 058

REACTIONS (5)
  - FALL [None]
  - BLOOD PRESSURE INCREASED [None]
  - FEMORAL NECK FRACTURE [None]
  - BALANCE DISORDER [None]
  - ULNA FRACTURE [None]
